FAERS Safety Report 14775087 (Version 1)
Quarter: 2018Q2

REPORT INFORMATION
  Report Type: Report from Study
  Country: None (occurrence: US)
  Receive Date: 20180418
  Receipt Date: 20180418
  Transmission Date: 20180711
  Serious: Yes (Other)
  Sender: FDA-Public Use
  Company Number: US-ABBVIE-17K-163-2192169-00

PATIENT
  Age: 58 Year
  Sex: Male

DRUGS (1)
  1. HUMIRA [Suspect]
     Active Substance: ADALIMUMAB
     Indication: PSORIASIS
     Route: 058
     Dates: end: 2017

REACTIONS (10)
  - Catheter site infection [Recovering/Resolving]
  - Scrotal infection [Unknown]
  - Hyperkeratosis [Not Recovered/Not Resolved]
  - Poor peripheral circulation [Recovering/Resolving]
  - Myocardial infarction [Recovering/Resolving]
  - Limb injury [Not Recovered/Not Resolved]
  - Cyst [Not Recovered/Not Resolved]
  - Drug ineffective [Not Recovered/Not Resolved]
  - Catheterisation cardiac [Recovering/Resolving]
  - Localised infection [Not Recovered/Not Resolved]

NARRATIVE: CASE EVENT DATE: 2016
